FAERS Safety Report 9490185 (Version 1)
Quarter: 2013Q3

REPORT INFORMATION
  Report Type: Spontaneous
  Country: US (occurrence: US)
  Receive Date: 20130830
  Receipt Date: 20130830
  Transmission Date: 20140515
  Serious: Yes (Hospitalization)
  Sender: FDA-Public Use
  Company Number: US-BIOGENIDEC-2013BI080283

PATIENT
  Age: 39 Year
  Sex: Female

DRUGS (1)
  1. AVONEX [Suspect]
     Indication: MULTIPLE SCLEROSIS
     Route: 030
     Dates: start: 20130116

REACTIONS (6)
  - Hysterectomy [Recovered/Resolved]
  - Appendicectomy [Recovered/Resolved]
  - Mobility decreased [Recovered/Resolved]
  - Procedural pain [Recovered/Resolved]
  - Cystitis [Recovered/Resolved]
  - Insomnia [Not Recovered/Not Resolved]
